FAERS Safety Report 20896351 (Version 1)
Quarter: 2022Q2

REPORT INFORMATION
  Report Type: Report from Study
  Country: US (occurrence: US)
  Receive Date: 20220531
  Receipt Date: 20220531
  Transmission Date: 20220721
  Serious: Yes (Hospitalization, Other)
  Sender: FDA-Public Use
  Company Number: US-TAKEDA-US201618275

PATIENT
  Age: 44 Year
  Sex: Female
  Weight: 47.2 kg

DRUGS (16)
  1. TEDUGLUTIDE [Suspect]
     Active Substance: TEDUGLUTIDE
     Indication: Short-bowel syndrome
     Dosage: 2.3 MILLIGRAM, QD
     Route: 042
     Dates: start: 20140709, end: 2020
  2. TEDUGLUTIDE [Suspect]
     Active Substance: TEDUGLUTIDE
     Indication: Short-bowel syndrome
     Dosage: 2.3 MILLIGRAM, QD
     Route: 042
     Dates: start: 20140709, end: 2020
  3. TEDUGLUTIDE [Suspect]
     Active Substance: TEDUGLUTIDE
     Indication: Short-bowel syndrome
     Dosage: 2.3 MILLIGRAM, QD
     Route: 042
     Dates: start: 20140709, end: 2020
  4. TEDUGLUTIDE [Suspect]
     Active Substance: TEDUGLUTIDE
     Indication: Short-bowel syndrome
     Dosage: 2.3 MILLIGRAM, QD
     Route: 042
     Dates: start: 20140709, end: 2020
  5. TEDUGLUTIDE [Suspect]
     Active Substance: TEDUGLUTIDE
     Dosage: 0.93 MILLIGRAM, QD
     Route: 042
     Dates: start: 20210323, end: 20210913
  6. TEDUGLUTIDE [Suspect]
     Active Substance: TEDUGLUTIDE
     Dosage: 0.93 MILLIGRAM, QD
     Route: 042
     Dates: start: 20210323, end: 20210913
  7. TEDUGLUTIDE [Suspect]
     Active Substance: TEDUGLUTIDE
     Dosage: 0.93 MILLIGRAM, QD
     Route: 042
     Dates: start: 20210323, end: 20210913
  8. TEDUGLUTIDE [Suspect]
     Active Substance: TEDUGLUTIDE
     Dosage: 0.93 MILLIGRAM, QD
     Route: 042
     Dates: start: 20210323, end: 20210913
  9. FERROUS GLUCONATE [Concomitant]
     Active Substance: FERROUS GLUCONATE
     Indication: Anaemia
     Dosage: 324 MILLIGRAM, QD
     Route: 048
     Dates: start: 20140319
  10. CHOLESTYRAMINE [Concomitant]
     Active Substance: CHOLESTYRAMINE
     Indication: Short-bowel syndrome
     Dosage: 4 GRAM, TID
     Route: 048
     Dates: start: 20140319
  11. TRAMADOL [Concomitant]
     Active Substance: TRAMADOL
     Indication: Anaemia
  12. ACETAMINOPHEN AND CODEINE [Concomitant]
     Active Substance: ACETAMINOPHEN\CODEINE PHOSPHATE
     Indication: Short-bowel syndrome
  13. MOTRIN [Concomitant]
     Active Substance: IBUPROFEN
     Indication: Arthralgia
     Dosage: 600 MILLIGRAM
     Route: 048
  14. POTASSIUM BICARBONATE [Concomitant]
     Active Substance: POTASSIUM BICARBONATE
     Indication: Hypokalaemia
     Dosage: UNK UNK, QD
     Route: 048
     Dates: start: 20150701, end: 20150704
  15. POTASSIUM BICARBONATE [Concomitant]
     Active Substance: POTASSIUM BICARBONATE
     Dosage: 25 UNK, QD
     Route: 048
     Dates: start: 20150704, end: 20151007
  16. POTASSIUM CHLORIDE [Concomitant]
     Active Substance: POTASSIUM CHLORIDE
     Indication: Hypokalaemia
     Dosage: UNK UNK, QD
     Route: 048
     Dates: start: 20150808

REACTIONS (3)
  - Vascular device infection [Recovered/Resolved]
  - Device related sepsis [Recovered/Resolved]
  - Abdominal pain [Not Recovered/Not Resolved]

NARRATIVE: CASE EVENT DATE: 20160602
